FAERS Safety Report 4423752-3 (Version None)
Quarter: 2004Q3

REPORT INFORMATION
  Report Type: 
  Country: None (occurrence: None)
  Receive Date: 20040805
  Receipt Date: 20040727
  Transmission Date: 20050211
  Serious: No
  Sender: FDA-Public Use
  Company Number: 2004CG00868

PATIENT
  Age: 64 Year
  Sex: Male
  Weight: 70 kg

DRUGS (8)
  1. ZESTORETIC [Suspect]
     Indication: HYPERTENSION
     Dosage: 20 + 12.5 MG
     Dates: start: 20040116, end: 20040121
  2. PLAVIX [Concomitant]
  3. KARDEGIC /FRA/ [Concomitant]
  4. DIAMICRON [Concomitant]
  5. PRAVASTATIN [Concomitant]
  6. BISOPROLOL FUMARATE [Concomitant]
  7. ZANIDIP [Concomitant]
  8. INSULIN [Concomitant]

REACTIONS (1)
  - AGEUSIA [None]
